FAERS Safety Report 7933742 (Version 2)
Quarter: 2012Q4

REPORT INFORMATION
  Report Type: 
  Country: US (occurrence: US)
  Receive Date: 20110506
  Receipt Date: 20121205
  Transmission Date: 20130627
  Serious: Yes (Other)
  Sender: FDA-Public Use
  Company Number: US-ROCHE-747637

PATIENT
  Sex: Female
  Weight: 78.5 kg

DRUGS (5)
  1. ACCUTANE [Suspect]
     Indication: ACNE CYSTIC
     Route: 065
     Dates: start: 19980326, end: 19991207
  2. ACCUTANE [Suspect]
     Route: 065
     Dates: start: 19991208, end: 20000415
  3. ACCUTANE [Suspect]
     Route: 065
     Dates: start: 20000522, end: 20000925
  4. ACCUTANE [Suspect]
     Route: 065
     Dates: start: 20020227, end: 20020621
  5. ORTHO TRI CYCLEN [Concomitant]
     Indication: CONTRACEPTION
     Dosage: FREQUENCY: DAILY.
     Route: 065

REACTIONS (13)
  - Crohn^s disease [Unknown]
  - Gastrointestinal injury [Unknown]
  - Inflammatory bowel disease [Unknown]
  - Intestinal obstruction [Unknown]
  - Depression [Unknown]
  - Post-traumatic stress disorder [Unknown]
  - Insomnia [Unknown]
  - Migraine [Unknown]
  - Amnesia [Unknown]
  - Mood swings [Unknown]
  - Mental disorder [Unknown]
  - Colitis ulcerative [Unknown]
  - Irritable bowel syndrome [Unknown]
